APPROVED DRUG PRODUCT: ISOSORBIDE MONONITRATE
Active Ingredient: ISOSORBIDE MONONITRATE
Strength: 30MG
Dosage Form/Route: TABLET, EXTENDED RELEASE;ORAL
Application: A076813 | Product #002
Applicant: HIKMA INTERNATIONAL PHARMACEUTICALS LLC
Approved: Mar 30, 2006 | RLD: No | RS: No | Type: DISCN